FAERS Safety Report 5932939-X (Version None)
Quarter: 2008Q4

REPORT INFORMATION
  Report Type: 
  Country: None (occurrence: None)
  Receive Date: 20081027
  Receipt Date: 20081027
  Transmission Date: 20090506
  Serious: Yes (Hospitalization)
  Sender: FDA-Public Use
  Company Number: None

PATIENT
  Sex: Female
  Weight: 53.5244 kg

DRUGS (1)
  1. XELODA [Suspect]
     Dates: start: 20080905, end: 20080923

REACTIONS (3)
  - DEHYDRATION [None]
  - DIARRHOEA [None]
  - OEDEMA PERIPHERAL [None]
